FAERS Safety Report 8400871-8 (Version None)
Quarter: 2012Q2

REPORT INFORMATION
  Report Type: 
  Country: None (occurrence: None)
  Receive Date: 20120601
  Receipt Date: 20120521
  Transmission Date: 20120825
  Serious: Yes (Other)
  Sender: FDA-Public Use
  Company Number: IL-AMGEN-ISRSP2012032845

PATIENT
  Age: 28 Year
  Sex: Male

DRUGS (1)
  1. ETANERCEPT [Suspect]
     Indication: PSORIATIC ARTHROPATHY
     Dosage: 50 MG, UNK, PRE-FILLED SYRINGE
     Dates: start: 20101201

REACTIONS (2)
  - BONE NEOPLASM MALIGNANT [None]
  - CONDITION AGGRAVATED [None]
